FAERS Safety Report 8020323-7 (Version None)
Quarter: 2012Q1

REPORT INFORMATION
  Report Type: 
  Country: None (occurrence: None)
  Receive Date: 20120103
  Receipt Date: 20111201
  Transmission Date: 20120608
  Serious: Yes (Life-Threatening, Disabling, Other)
  Sender: FDA-Public Use
  Company Number: CL-CELGENEUS-034-C5013-11081209

PATIENT
  Sex: Male
  Weight: 75.5 kg

DRUGS (10)
  1. LENALIDOMIDE [Suspect]
     Dosage: 15 MILLIGRAM
     Route: 048
     Dates: start: 20110801, end: 20110804
  2. AMOXICILLIN [Concomitant]
     Dosage: 500 MILLIGRAM
     Route: 048
     Dates: start: 20110428, end: 20110505
  3. AMOXICILLIN AND CLAVULANATE POTASSIUM [Concomitant]
     Indication: BRONCHITIS
     Dosage: 875/125 MG
     Route: 048
     Dates: start: 20110806, end: 20110815
  4. LENALIDOMIDE [Suspect]
     Dosage: 5 MILLIGRAM
     Route: 048
     Dates: start: 20110214
  5. ACETAMINOPHEN [Concomitant]
     Dosage: 500 MILLIGRAM
     Route: 048
     Dates: start: 20110428, end: 20110501
  6. BROMHEXINA [Concomitant]
     Dosage: 5 MILLILITER
     Route: 048
     Dates: start: 20110428, end: 20110505
  7. LENALIDOMIDE [Suspect]
     Dosage: 10 MILLIGRAM
     Route: 048
     Dates: start: 20110812, end: 20110902
  8. LENALIDOMIDE [Suspect]
     Dosage: 7.5 MILLIGRAM
     Route: 048
     Dates: start: 20110905
  9. ALLOPURINOL [Concomitant]
     Indication: PROPHYLAXIS
     Dosage: 300 MILLIGRAM
     Route: 048
     Dates: start: 20110211
  10. CHLORPHENIRAMINE MALEATE [Concomitant]
     Dosage: 4 MILLIGRAM
     Route: 048
     Dates: start: 20110403, end: 20110410

REACTIONS (1)
  - NEUTROPENIA [None]
